FAERS Safety Report 10508494 (Version 1)
Quarter: 2014Q4

REPORT INFORMATION
  Report Type: Spontaneous
  Country: US (occurrence: None)
  Receive Date: 20141007
  Receipt Date: 20141007
  Transmission Date: 20150528
  Serious: Yes (Other)
  Sender: FDA-Public Use
  Company Number: TPU2014-00267

PATIENT
  Sex: Female

DRUGS (3)
  1. LIDODERM [Suspect]
     Active Substance: LIDOCAINE
     Indication: BACK PAIN
     Route: 061
  2. FOLFOX [Suspect]
     Active Substance: FLUOROURACIL\LEUCOVORIN CALCIUM\OXALIPLATIN
     Indication: PRODUCT USED FOR UNKNOWN INDICATION
  3. LIDODERM [Suspect]
     Active Substance: LIDOCAINE
     Indication: NEUROPATHY PERIPHERAL
     Route: 061

REACTIONS (5)
  - Drug ineffective [None]
  - Arthritis [None]
  - Surgery [None]
  - Device adhesion issue [None]
  - Neuropathy peripheral [None]

NARRATIVE: CASE EVENT DATE: 2014
